FAERS Safety Report 10052351 (Version 1)
Quarter: 2014Q2

REPORT INFORMATION
  Report Type: Spontaneous
  Country: US (occurrence: None)
  Receive Date: 20140401
  Receipt Date: 20140401
  Transmission Date: 20141212
  Serious: Yes (Other)
  Sender: FDA-Public Use
  Company Number: None

PATIENT
  Age: 27 Year
  Sex: Female
  Weight: 106.6 kg

DRUGS (1)
  1. LATISSE [Suspect]
     Indication: GROWTH OF EYELASHES
     Dosage: 1 DROP TO AFFECTED AREA, ONCE DAILY, APPLY TO UPPER EYELASH LINE
     Dates: start: 20140328

REACTIONS (1)
  - Dysgeusia [None]
